FAERS Safety Report 12321818 (Version 1)
Quarter: 2016Q2

REPORT INFORMATION
  Report Type: Spontaneous
  Country: FI (occurrence: FI)
  Receive Date: 20160502
  Receipt Date: 20160502
  Transmission Date: 20160815
  Serious: Yes (Other)
  Sender: FDA-Public Use
  Company Number: FI-ASTELLAS-2016US016248

PATIENT
  Sex: Female

DRUGS (2)
  1. BETMIGA [Suspect]
     Active Substance: MIRABEGRON
     Indication: HYPERTONIC BLADDER
     Dosage: 1 DF, PER DAY
     Route: 048
  2. BETMIGA [Suspect]
     Active Substance: MIRABEGRON
     Dosage: 1 DF, PER DAY
     Route: 048

REACTIONS (1)
  - Bacterial vaginosis [Recovered/Resolved]
